FAERS Safety Report 24125084 (Version 1)
Quarter: 2024Q3

REPORT INFORMATION
  Report Type: Report from Study
  Country: US (occurrence: US)
  Receive Date: 20240723
  Receipt Date: 20240723
  Transmission Date: 20241017
  Serious: Yes (Death, Other)
  Sender: TAKEDA
  Company Number: US-TAKEDA-2024TUS073433

PATIENT
  Sex: Female

DRUGS (1)
  1. MARIBAVIR [Suspect]
     Active Substance: MARIBAVIR
     Indication: Bone marrow transplant
     Dosage: UNK UNK, BID
     Route: 065

REACTIONS (3)
  - Death [Fatal]
  - Product use in unapproved indication [Unknown]
  - Product use issue [Unknown]
